FAERS Safety Report 25725507 (Version 2)
Quarter: 2025Q3

REPORT INFORMATION
  Report Type: Spontaneous
  Country: US (occurrence: US)
  Receive Date: 20250826
  Receipt Date: 20250918
  Transmission Date: 20251020
  Serious: Yes (Death, Hospitalization)
  Sender: TEVA
  Company Number: US-TEVA-VS-3364712

PATIENT
  Age: 4 Year
  Sex: Male

DRUGS (10)
  1. IRINOTECAN [Suspect]
     Active Substance: IRINOTECAN
     Indication: Neuroblastoma
     Route: 065
  2. LORLATINIB [Interacting]
     Active Substance: LORLATINIB
     Indication: Neuroblastoma
     Route: 065
  3. LORLATINIB [Interacting]
     Active Substance: LORLATINIB
     Indication: Neuroblastoma
     Route: 065
  4. NAXITAMAB [Interacting]
     Active Substance: NAXITAMAB
     Indication: Neuroblastoma
     Route: 065
  5. TEMOZOLOMIDE [Suspect]
     Active Substance: TEMOZOLOMIDE
     Indication: Neuroblastoma
     Route: 065
  6. TOPOTECAN [Suspect]
     Active Substance: TOPOTECAN HYDROCHLORIDE
     Indication: Neuroblastoma
     Route: 065
  7. DINUTUXIMAB [Interacting]
     Active Substance: DINUTUXIMAB
     Indication: Neuroblastoma
     Route: 065
  8. GRANULOCYTE-MACROPHAGE COLONY-STIMULATING FACTOR [Suspect]
     Active Substance: GRANULOCYTE-MACROPHAGE COLONY-STIMULATING FACTOR
     Indication: Neuroblastoma
     Route: 065
  9. SARGRAMOSTIM [Suspect]
     Active Substance: SARGRAMOSTIM
     Indication: Neuroblastoma
     Route: 065
  10. CYCLOPHOSPHAMIDE [Suspect]
     Active Substance: CYCLOPHOSPHAMIDE
     Indication: Neuroblastoma
     Route: 065

REACTIONS (5)
  - Pulmonary toxicity [Fatal]
  - Off label use [Unknown]
  - Drug interaction [Fatal]
  - Drug ineffective [Fatal]
  - Respiratory failure [Fatal]
